FAERS Safety Report 9714510 (Version 1)
Quarter: 2013Q4

REPORT INFORMATION
  Report Type: Spontaneous
  Country: US (occurrence: US)
  Receive Date: 20131126
  Receipt Date: 20131126
  Transmission Date: 20140711
  Serious: Yes (Hospitalization)
  Sender: FDA-Public Use
  Company Number: US-PFIZER INC-2013338107

PATIENT
  Age: 67 Year
  Sex: Female
  Weight: 60.77 kg

DRUGS (14)
  1. REVATIO [Suspect]
     Indication: PULMONARY HYPERTENSION
     Dosage: 20 MG, 3X/DAY
     Route: 048
  2. REVATIO [Suspect]
     Indication: ATRIAL FIBRILLATION
  3. CHLOROQUINE [Concomitant]
     Dosage: UNK
  4. VITAMIN D [Concomitant]
     Dosage: UNK
  5. BENTYL [Concomitant]
     Dosage: UNK
  6. LASIX [Concomitant]
     Dosage: UNK
  7. SYNTHROID [Concomitant]
     Dosage: UNK
  8. ZESTRIL [Concomitant]
     Dosage: UNK
  9. LOPRESSOR [Concomitant]
     Dosage: 25 MG, 2X/DAY
  10. DELTASONE [Concomitant]
     Dosage: UNK
  11. XIFAXAN [Concomitant]
     Dosage: UNK
  12. PRINIVIL [Concomitant]
     Dosage: UNK
  13. MAGNESIA [Concomitant]
     Dosage: UNK
  14. PRILOSEC [Concomitant]
     Dosage: UNK

REACTIONS (3)
  - Ammonia increased [Unknown]
  - Nervous system disorder [Unknown]
  - Off label use [Unknown]
